FAERS Safety Report 17219818 (Version 2)
Quarter: 2020Q1

REPORT INFORMATION
  Report Type: Report from Study
  Country: BR (occurrence: BR)
  Receive Date: 20191231
  Receipt Date: 20200117
  Transmission Date: 20200409
  Serious: Yes (Other)
  Sender: FDA-Public Use
  Company Number: NVSC2019BR082637

PATIENT
  Sex: Female

DRUGS (2)
  1. GALVUS MET [Suspect]
     Active Substance: METFORMIN HYDROCHLORIDE\VILDAGLIPTIN
     Indication: DIABETES MELLITUS
     Dosage: STARTED 20 YEARS AGO, BID (IN THE MORNING AND NIGHT)
     Route: 048
  2. DIOVAN [Suspect]
     Active Substance: VALSARTAN
     Indication: HYPERTENSION
     Dosage: 1 DF, BID (STARTED 20 YEARS AGO)
     Route: 048

REACTIONS (10)
  - Cataract [Recovered/Resolved]
  - Hypertension [Not Recovered/Not Resolved]
  - Abdominal pain [Recovered/Resolved]
  - Syncope [Recovered/Resolved]
  - Diabetes mellitus [Not Recovered/Not Resolved]
  - Blood pressure fluctuation [Recovered/Resolved]
  - Gastritis [Not Recovered/Not Resolved]
  - Malaise [Recovered/Resolved]
  - Vision blurred [Not Recovered/Not Resolved]
  - Blood pressure decreased [Recovered/Resolved]
